FAERS Safety Report 5158081-6 (Version None)
Quarter: 2006Q4

REPORT INFORMATION
  Report Type: 
  Country: None (occurrence: None)
  Receive Date: 20061113
  Receipt Date: 20061101
  Transmission Date: 20070319
  Serious: Yes (Other)
  Sender: FDA-Public Use
  Company Number: 200610347BBE

PATIENT
  Age: 50 Year
  Sex: Female

DRUGS (1)
  1. GAMUNEX [Suspect]
     Dates: start: 20061019

REACTIONS (2)
  - PYREXIA [None]
  - STAPHYLOCOCCAL INFECTION [None]
